FAERS Safety Report 21258846 (Version 1)
Quarter: 2022Q3

REPORT INFORMATION
  Report Type: Spontaneous
  Country: CN (occurrence: CN)
  Receive Date: 20220826
  Receipt Date: 20220826
  Transmission Date: 20221026
  Serious: Yes (Hospitalization)
  Sender: FDA-Public Use
  Company Number: CN-PFIZER INC-PV202200050075

PATIENT
  Age: 27 Year
  Sex: Female
  Weight: 45 kg

DRUGS (6)
  1. METHOTREXATE SODIUM [Suspect]
     Active Substance: METHOTREXATE SODIUM
     Indication: Choriocarcinoma
     Dosage: 145 MG, 1X/DAY
     Route: 042
     Dates: start: 20220806, end: 20220806
  2. METHOTREXATE SODIUM [Suspect]
     Active Substance: METHOTREXATE SODIUM
     Dosage: 290 MG, 1X/DAY
     Route: 041
     Dates: start: 20220806, end: 20220806
  3. DACTINOMYCIN [Suspect]
     Active Substance: DACTINOMYCIN
     Indication: Choriocarcinoma
     Dosage: 500 UG, 1X/DAY
     Route: 041
     Dates: start: 20220806, end: 20220807
  4. ETOPOSIDE [Suspect]
     Active Substance: ETOPOSIDE
     Indication: Choriocarcinoma
     Dosage: 145 MG, 1X/DAY
     Route: 041
     Dates: start: 20220806, end: 20220807
  5. VINCRISTINE SULFATE [Suspect]
     Active Substance: VINCRISTINE SULFATE
     Indication: Choriocarcinoma
     Dosage: 2 MG, 1X/DAY
     Route: 042
     Dates: start: 20220813, end: 20220813
  6. CYCLOPHOSPHAMIDE [Suspect]
     Active Substance: CYCLOPHOSPHAMIDE
     Indication: Choriocarcinoma
     Dosage: 870 MG, 1X/DAY
     Route: 041
     Dates: start: 20220813, end: 20220813

REACTIONS (1)
  - Haemoglobin decreased [Not Recovered/Not Resolved]

NARRATIVE: CASE EVENT DATE: 20220815
